FAERS Safety Report 15957200 (Version 4)
Quarter: 2019Q3

REPORT INFORMATION
  Report Type: Spontaneous
  Country: JP (occurrence: JP)
  Receive Date: 20190213
  Receipt Date: 20190918
  Transmission Date: 20191004
  Serious: Yes (Other)
  Sender: FDA-Public Use
  Company Number: JP-EISAI MEDICAL RESEARCH-EC-2019-051848

PATIENT
  Age: 75 Year
  Sex: Male

DRUGS (3)
  1. LENVIMA [Suspect]
     Active Substance: LENVATINIB
     Indication: HEPATOCELLULAR CARCINOMA
     Route: 048
     Dates: start: 20181113, end: 20190127
  2. LENVIMA [Suspect]
     Active Substance: LENVATINIB
     Dosage: 8MG,TAKEN 5 OUT OF 7 DAYS OF WEEK
     Route: 048
     Dates: start: 20190816, end: 20190820
  3. LENVIMA [Suspect]
     Active Substance: LENVATINIB
     Route: 048
     Dates: start: 20190226, end: 20190813

REACTIONS (5)
  - Amylase increased [Recovering/Resolving]
  - Nausea [Unknown]
  - Pancreatitis [Recovering/Resolving]
  - Abdominal pain [Recovered/Resolved]
  - Back pain [Recovering/Resolving]

NARRATIVE: CASE EVENT DATE: 20190127
